FAERS Safety Report 19497577 (Version 2)
Quarter: 2021Q3

REPORT INFORMATION
  Report Type: Report from Study
  Country: CA (occurrence: CA)
  Receive Date: 20210706
  Receipt Date: 20210818
  Transmission Date: 20211014
  Serious: Yes (Death, Life-Threatening, Other)
  Sender: FDA-Public Use
  Company Number: CA-SA-2021SA096499

PATIENT
  Age: 62 Year
  Sex: Female

DRUGS (19)
  1. ANTI?THYMOCYTE GLOBULIN (RABBIT) NOS [Suspect]
     Active Substance: LAPINE T-LYMPHOCYTE IMMUNE GLOBULIN
     Indication: PROPHYLAXIS AGAINST GRAFT VERSUS HOST DISEASE
     Dosage: 800 MG
     Route: 042
     Dates: start: 20200816, end: 20200820
  2. METHOTREXATE. [Suspect]
     Active Substance: METHOTREXATE
     Dosage: 72 MG
     Route: 042
     Dates: start: 20200826
  3. LEVOTHYROXINE. [Concomitant]
     Active Substance: LEVOTHYROXINE
     Indication: HYPOTHYROIDISM
     Dosage: 50 UG, QD
     Dates: start: 20200910
  4. TINZAPARIN [Concomitant]
     Active Substance: TINZAPARIN
     Indication: THROMBOSIS PROPHYLAXIS
     Dosage: 4500 U, QD
     Dates: start: 20210312
  5. METHOTREXATE. [Suspect]
     Active Substance: METHOTREXATE
     Dosage: 72 MG
     Route: 042
     Dates: start: 20200831
  6. METHOTREXATE. [Suspect]
     Active Substance: METHOTREXATE
  7. VALGANCICLOVIR. [Concomitant]
     Active Substance: VALGANCICLOVIR
     Dosage: UNK
     Dates: start: 20200924
  8. OLANZAPINE. [Concomitant]
     Active Substance: OLANZAPINE
     Indication: ANTIEMETIC SUPPORTIVE CARE
     Dosage: 5 MG, QD
     Dates: start: 20210321, end: 20210325
  9. METHOTREXATE. [Suspect]
     Active Substance: METHOTREXATE
     Indication: PROPHYLAXIS AGAINST GRAFT VERSUS HOST DISEASE
     Dosage: 72 MG
     Route: 042
     Dates: start: 20200821
  10. FOSCARNET [Concomitant]
     Active Substance: FOSCARNET
     Dosage: 6300 MG, Q12H
     Dates: start: 20210203, end: 20210210
  11. FOSCARNET [Concomitant]
     Active Substance: FOSCARNET
     Dosage: 6300 MG, Q12H
     Dates: start: 20210312
  12. LETERMOVIR [Concomitant]
     Active Substance: LETERMOVIR
     Dosage: 480 MG, QD
     Dates: start: 20210302, end: 20210311
  13. LETERMOVIR [Concomitant]
     Active Substance: LETERMOVIR
     Indication: VIRAL INFECTION
     Dosage: UNK
     Dates: start: 202101
  14. PANTOPRAZOLE [Concomitant]
     Active Substance: PANTOPRAZOLE
     Indication: GASTRITIS PROPHYLAXIS
     Dosage: 40 MG, QD
     Dates: start: 20200910
  15. SEPTRA [Concomitant]
     Active Substance: SULFAMETHOXAZOLE\TRIMETHOPRIM
     Indication: ANTIFUNGAL PROPHYLAXIS
     Dosage: 400/80 TABLET, QD
     Dates: start: 20210316
  16. VITAMINS NOS [Concomitant]
     Active Substance: VITAMINS
     Indication: SUPPLEMENTATION THERAPY
     Dosage: 1 DF, QD
     Dates: start: 20210122
  17. METHOTREXATE. [Suspect]
     Active Substance: METHOTREXATE
     Dosage: 72 MG
     Route: 042
     Dates: start: 20200823
  18. FOSCARNET [Concomitant]
     Active Substance: FOSCARNET
     Indication: CYTOMEGALOVIRUS INFECTION
     Dosage: 6300 MG, Q12H
     Dates: start: 20201127, end: 20210115
  19. VALACYCLOVIR [Concomitant]
     Active Substance: VALACYCLOVIR HYDROCHLORIDE
     Indication: VIRAL INFECTION
     Dosage: 500 MG, QD
     Dates: start: 20210118, end: 20210311

REACTIONS (10)
  - Condition aggravated [Fatal]
  - Hepatic steatosis [Unknown]
  - Renal cyst [Unknown]
  - Pneumonia [Unknown]
  - Seizure [Fatal]
  - Encephalitis cytomegalovirus [Fatal]
  - Palliative care [Unknown]
  - CD4 lymphocytes decreased [Not Recovered/Not Resolved]
  - Haemosiderosis [Unknown]
  - Cognitive disorder [Fatal]

NARRATIVE: CASE EVENT DATE: 20201127
